FAERS Safety Report 7094382-2 (Version None)
Quarter: 2010Q4

REPORT INFORMATION
  Report Type: 
  Country: None (occurrence: None)
  Receive Date: 20101110
  Receipt Date: 20101029
  Transmission Date: 20110411
  Serious: Yes (Hospitalization, Other)
  Sender: FDA-Public Use
  Company Number: US-JNJFOC-20101100888

PATIENT
  Sex: Male

DRUGS (3)
  1. LEVAQUIN [Suspect]
     Indication: KIDNEY INFECTION
     Route: 048
  2. METHYLPREDNISOLONE [Suspect]
     Indication: ILL-DEFINED DISORDER
     Route: 065
  3. PREDNISONE [Suspect]
     Indication: ILL-DEFINED DISORDER
     Route: 065

REACTIONS (3)
  - CARPAL TUNNEL SYNDROME [None]
  - NERVE INJURY [None]
  - TENDON INJURY [None]
